FAERS Safety Report 23385965 (Version 2)
Quarter: 2025Q4

REPORT INFORMATION
  Report Type: Spontaneous
  Country: EU (occurrence: EU)
  Receive Date: 20240110
  Receipt Date: 20251215
  Transmission Date: 20260118
  Serious: Yes (Hospitalization)
  Sender: SANDOZ
  Company Number: EU-ROCHE-3271261

PATIENT
  Age: 74 Year
  Sex: Female

DRUGS (11)
  1. ATEZOLIZUMAB [Suspect]
     Active Substance: ATEZOLIZUMAB
     Indication: Non-small cell lung cancer
     Dosage: NO OF CYCLES-11
     Route: 042
     Dates: start: 20211220
  2. BEVACIZUMAB [Suspect]
     Active Substance: BEVACIZUMAB
     Indication: Non-small cell lung cancer
     Dosage: NO OF CYCLES-04
     Route: 042
     Dates: start: 20211220, end: 20220228
  3. CARBOPLATIN [Suspect]
     Active Substance: CARBOPLATIN
     Indication: Non-small cell lung cancer
     Dosage: NO OF CYCLES-04
     Route: 042
     Dates: start: 20211220, end: 20220228
  4. CARBOPLATIN [Suspect]
     Active Substance: CARBOPLATIN
     Indication: Non-small cell lung cancer
     Route: 042
  5. PACLITAXEL [Suspect]
     Active Substance: PACLITAXEL
     Indication: Non-small cell lung cancer
     Dosage: NO OF CYCLES-04
     Route: 042
     Dates: start: 20211220, end: 20220228
  6. FORMOTEROL [Concomitant]
     Active Substance: FORMOTEROL
     Indication: Product used for unknown indication
     Route: 065
     Dates: start: 20220824
  7. PREDNISONE [Concomitant]
     Active Substance: PREDNISONE
     Dosage: 40.000MG QD
     Route: 065
     Dates: start: 20220829, end: 20220905
  8. PREDNISONE [Concomitant]
     Active Substance: PREDNISONE
     Indication: Product used for unknown indication
     Dosage: 60.000MG QD
     Route: 065
     Dates: start: 20220824
  9. PREDNISONE [Concomitant]
     Active Substance: PREDNISONE
     Dosage: 60.000MG QD
     Route: 065
     Dates: start: 20220822
  10. PREDNISONE [Concomitant]
     Active Substance: PREDNISONE
     Dosage: 60.000MG QD
     Route: 065
     Dates: start: 20220824, end: 20220828
  11. PREDNISONE [Concomitant]
     Active Substance: PREDNISONE
     Dosage: 60MG PER DAY PLUS 30 MG PER DAY
     Route: 065
     Dates: start: 20220823

REACTIONS (1)
  - Immune-mediated lung disease [Recovered/Resolved with Sequelae]

NARRATIVE: CASE EVENT DATE: 20220822
